FAERS Safety Report 8116200-3 (Version None)
Quarter: 2012Q1

REPORT INFORMATION
  Report Type: 
  Country: None (occurrence: None)
  Receive Date: 20120206
  Receipt Date: 20120127
  Transmission Date: 20120608
  Serious: Yes (Hospitalization, Disabling, Other)
  Sender: FDA-Public Use
  Company Number: US-MERCK-1107USA03285

PATIENT
  Age: 57 Year
  Sex: Female
  Weight: 75 kg

DRUGS (8)
  1. FOSAMAX [Suspect]
     Indication: OSTEOPENIA
     Route: 048
     Dates: end: 20090401
  2. CALCIUM (UNSPECIFIED) [Concomitant]
     Indication: OSTEOPENIA
     Route: 065
     Dates: start: 19970101
  3. FOSAMAX [Suspect]
     Route: 048
     Dates: start: 20010301
  4. FOSAMAX [Suspect]
     Route: 048
     Dates: start: 20000401, end: 20010101
  5. SYNTHROID [Concomitant]
     Indication: HYPOTHYROIDISM
     Route: 065
     Dates: start: 19970101, end: 20070101
  6. FOSAMAX [Suspect]
     Route: 048
     Dates: start: 19990101, end: 20000401
  7. VITAMINS (UNSPECIFIED) [Concomitant]
     Route: 065
     Dates: start: 19970101
  8. OGEN [Concomitant]
     Indication: MENOPAUSE
     Route: 065

REACTIONS (50)
  - TIBIA FRACTURE [None]
  - BLOOD ALKALINE PHOSPHATASE INCREASED [None]
  - THIRST [None]
  - LYMPHADENOPATHY [None]
  - SOMNOLENCE [None]
  - PYREXIA [None]
  - SLEEP APNOEA SYNDROME [None]
  - SACROILIITIS [None]
  - DISTURBANCE IN ATTENTION [None]
  - PERIPHERAL COLDNESS [None]
  - GLUCOSE TOLERANCE IMPAIRED [None]
  - HAEMORRHOIDS [None]
  - CONTUSION [None]
  - DYSPNOEA [None]
  - ANIMAL BITE [None]
  - FEMUR FRACTURE [None]
  - PAIN [None]
  - ECZEMA [None]
  - ARTHROPATHY [None]
  - TRAUMATIC ARTHROPATHY [None]
  - HEADACHE [None]
  - PAIN IN EXTREMITY [None]
  - NIGHT SWEATS [None]
  - INTERVERTEBRAL DISC DEGENERATION [None]
  - LOW TURNOVER OSTEOPATHY [None]
  - DIVERTICULUM [None]
  - CHEST PAIN [None]
  - DYSPHAGIA [None]
  - ASTHENIA [None]
  - WEIGHT INCREASED [None]
  - URINARY TRACT INFECTION [None]
  - TOOTH DISORDER [None]
  - BLOOD CHOLESTEROL INCREASED [None]
  - FALL [None]
  - ABDOMINAL DISTENSION [None]
  - BLOOD PRESSURE INCREASED [None]
  - DIARRHOEA [None]
  - FIBROMYALGIA [None]
  - MUSCULOSKELETAL STIFFNESS [None]
  - DIABETES MELLITUS [None]
  - NASAL SEPTUM DISORDER [None]
  - ADVERSE DRUG REACTION [None]
  - ALOPECIA [None]
  - GINGIVAL DISORDER [None]
  - HYPERGLYCAEMIA [None]
  - HYPERCALCAEMIA [None]
  - BLOOD URINE PRESENT [None]
  - HERPES ZOSTER [None]
  - TOOTH CROWDING [None]
  - CONSTIPATION [None]
